FAERS Safety Report 4717523-8 (Version None)
Quarter: 2005Q3

REPORT INFORMATION
  Report Type: 
  Country: None (occurrence: None)
  Receive Date: 20050715
  Receipt Date: 20050629
  Transmission Date: 20060218
  Serious: Yes (Disabling, Other)
  Sender: FDA-Public Use
  Company Number: 2004-0007267

PATIENT
  Age: 3 Year
  Sex: Female
  Weight: 9.9791 kg

DRUGS (1)
  1. HEPSERA [Suspect]
     Indication: HEPATITIS B
     Dosage: 30 MG, 1 IN 1 D, ORAL
     Route: 048
     Dates: start: 20030515, end: 20040627

REACTIONS (13)
  - ASTHENIA [None]
  - BLOOD CHLORIDE INCREASED [None]
  - BLOOD CREATININE DECREASED [None]
  - BLOOD UREA ABNORMAL [None]
  - CARBON DIOXIDE DECREASED [None]
  - CONSTIPATION [None]
  - DEVELOPMENTAL COORDINATION DISORDER [None]
  - DIARRHOEA [None]
  - DIFFICULTY IN WALKING [None]
  - LACTIC ACIDOSIS [None]
  - MUSCULAR WEAKNESS [None]
  - OVERDOSE [None]
  - WEIGHT GAIN POOR [None]
